FAERS Safety Report 5308572-X (Version None)
Quarter: 2007Q2

REPORT INFORMATION
  Report Type: 
  Country: None (occurrence: None)
  Receive Date: 20070420
  Receipt Date: 20070406
  Transmission Date: 20071010
  Serious: Yes (Congenital Anomaly)
  Sender: FDA-Public Use
  Company Number: SPV1-2007-02114

PATIENT

DRUGS (1)
  1. PENTASA [Suspect]
     Indication: INFLAMMATORY BOWEL DISEASE
     Dosage: TRANSPLACENTAL
     Route: 064

REACTIONS (3)
  - DRUG EXPOSURE DURING PREGNANCY [None]
  - FOETAL DISORDER [None]
  - ULTRASOUND KIDNEY ABNORMAL [None]
